FAERS Safety Report 20060930 (Version 1)
Quarter: 2021Q4

REPORT INFORMATION
  Report Type: Spontaneous
  Country: US (occurrence: US)
  Receive Date: 20211112
  Receipt Date: 20211112
  Transmission Date: 20220303
  Serious: No
  Sender: FDA-Public Use
  Company Number: US-AMGEN-USASP2021170798

PATIENT
  Age: 64 Year
  Sex: Female

DRUGS (6)
  1. REPATHA [Suspect]
     Active Substance: EVOLOCUMAB
     Indication: Hypercholesterolaemia
     Dosage: 140 MILLIGRAM, Q2WK
     Route: 065
     Dates: start: 202007
  2. REPATHA [Suspect]
     Active Substance: EVOLOCUMAB
     Indication: Blood cholesterol abnormal
  3. ENTOCORT [Concomitant]
     Active Substance: BUDESONIDE
     Indication: Colitis microscopic
     Dosage: 3 MILLIGRAM
     Route: 065
  4. ENTOCORT EC [Concomitant]
     Active Substance: BUDESONIDE
     Indication: Colitis microscopic
     Dosage: UNK
     Route: 065
     Dates: start: 2016
  5. VITAMIN D3 [Concomitant]
     Active Substance: CHOLECALCIFEROL
     Dosage: 2000 UNIT
  6. CALCIUM [Concomitant]
     Active Substance: CALCIUM
     Dosage: 1200 MILLIGRAM, QD

REACTIONS (14)
  - Rhinorrhoea [Not Recovered/Not Resolved]
  - Joint swelling [Unknown]
  - Oropharyngeal pain [Unknown]
  - Multiple allergies [Unknown]
  - Dry skin [Unknown]
  - Lip dry [Unknown]
  - Cough [Not Recovered/Not Resolved]
  - Swelling face [Unknown]
  - Lip swelling [Unknown]
  - Sinusitis [Unknown]
  - Rash pruritic [Unknown]
  - Headache [Unknown]
  - Rash macular [Unknown]
  - Diarrhoea [Unknown]

NARRATIVE: CASE EVENT DATE: 20200701
